FAERS Safety Report 4983217-7 (Version None)
Quarter: 2006Q2

REPORT INFORMATION
  Report Type: 
  Country: None (occurrence: None)
  Receive Date: 20060419
  Receipt Date: 20060405
  Transmission Date: 20061013
  Serious: Yes (Death, Hospitalization)
  Sender: FDA-Public Use
  Company Number: 2006-BP-03977RO

PATIENT
  Age: 76 Year
  Sex: Male

DRUGS (4)
  1. METHOTREXATE [Suspect]
     Indication: RHEUMATOID ARTHRITIS
     Dosage: 10 MG/DAY
  2. ASPIRIN [Concomitant]
  3. FUROSEMIDE [Concomitant]
  4. DALTEPARINE [Concomitant]

REACTIONS (10)
  - ACCIDENTAL OVERDOSE [None]
  - ARTERIOSCLEROSIS CORONARY ARTERY [None]
  - CARDIOMEGALY [None]
  - DERMATITIS [None]
  - DRUG TOXICITY [None]
  - MYOCARDIAL INFARCTION [None]
  - PANCYTOPENIA [None]
  - SEPTIC SHOCK [None]
  - TRACHEAL INFLAMMATION [None]
  - TRIPLE VESSEL BYPASS GRAFT [None]
